FAERS Safety Report 4699052-3 (Version None)
Quarter: 2005Q2

REPORT INFORMATION
  Report Type: 
  Country: None (occurrence: None)
  Receive Date: 20050624
  Receipt Date: 20050616
  Transmission Date: 20051028
  Serious: Yes (Other)
  Sender: FDA-Public Use
  Company Number: US-KINGPHARMUSA00001-K200500821

PATIENT
  Sex: Male

DRUGS (2)
  1. SONATA [Suspect]
     Dosage: 30 MG, SINGLE
     Dates: start: 20050501, end: 20050501
  2. SONATA [Suspect]
     Dosage: 270 MG, SINGLE
     Dates: start: 20050501, end: 20050501

REACTIONS (9)
  - AMNESIA [None]
  - DRUG ABUSER [None]
  - EUPHORIC MOOD [None]
  - FAECAL INCONTINENCE [None]
  - INTENTIONAL MISUSE [None]
  - MUSCULAR WEAKNESS [None]
  - OVERDOSE [None]
  - PARANOIA [None]
  - URINARY INCONTINENCE [None]
